FAERS Safety Report 11405802 (Version 2)
Quarter: 2016Q1

REPORT INFORMATION
  Report Type: Report from Study
  Country: GB (occurrence: GB)
  Receive Date: 20150821
  Receipt Date: 20160315
  Transmission Date: 20160525
  Serious: No
  Sender: FDA-Public Use
  Company Number: GB-JNJFOC-20150814596

PATIENT

DRUGS (1)
  1. REMICADE [Suspect]
     Active Substance: INFLIXIMAB
     Indication: COLITIS ULCERATIVE
     Route: 042

REACTIONS (1)
  - Peritoneal tuberculosis [Not Recovered/Not Resolved]

NARRATIVE: CASE EVENT DATE: 20120622
